FAERS Safety Report 9167099 (Version 1)
Quarter: 2013Q1

REPORT INFORMATION
  Report Type: Spontaneous
  Country: DK (occurrence: None)
  Receive Date: 20130304
  Receipt Date: 20130304
  Transmission Date: 20140127
  Serious: Yes (Life-Threatening)
  Sender: FDA-Public Use
  Company Number: 1616290

PATIENT
  Age: 35 None
  Sex: Male

DRUGS (4)
  1. PROPOFOL [Suspect]
     Indication: INDUCTION OF ANAESTHESIA
  2. REMIFENTANIL HYDROCHLORIDE [Suspect]
     Indication: INDUCTION OF ANAESTHESIA
  3. BETA BLOCKING AGENTS [Concomitant]
  4. ANTIBIOTICS [Concomitant]

REACTIONS (8)
  - Circulatory collapse [None]
  - Cardiac arrest [None]
  - Bradycardia [None]
  - Blood pressure decreased [None]
  - Cardiogenic shock [None]
  - Cardiomyopathy [None]
  - Mitral valve incompetence [None]
  - Dilatation ventricular [None]
